FAERS Safety Report 17213937 (Version 2)
Quarter: 2020Q1

REPORT INFORMATION
  Report Type: Spontaneous
  Country: US (occurrence: US)
  Receive Date: 20191230
  Receipt Date: 20200106
  Transmission Date: 20200409
  Serious: No
  Sender: FDA-Public Use
  Company Number: US-PFIZER INC-2019555052

PATIENT
  Sex: Female

DRUGS (1)
  1. EFFEXOR [Suspect]
     Active Substance: VENLAFAXINE HYDROCHLORIDE
     Dosage: UNK
     Dates: end: 20180804

REACTIONS (12)
  - Bone disorder [Unknown]
  - Mydriasis [Unknown]
  - Gait disturbance [Unknown]
  - Mental disorder [Unknown]
  - Anxiety [Unknown]
  - General physical condition abnormal [Unknown]
  - Pain in extremity [Unknown]
  - Withdrawal syndrome [Unknown]
  - Tremor [Unknown]
  - Overdose [Unknown]
  - Musculoskeletal stiffness [Unknown]
  - Body temperature abnormal [Unknown]
